FAERS Safety Report 11561135 (Version 1)
Quarter: 2015Q3

REPORT INFORMATION
  Report Type: Spontaneous
  Country: US (occurrence: US)
  Receive Date: 20150916
  Receipt Date: 20150916
  Transmission Date: 20151125
  Serious: No
  Sender: FDA-Public Use
  Company Number: US-ELI_LILLY_AND_COMPANY-US200810004037

PATIENT
  Sex: Female

DRUGS (1)
  1. FORTEO [Suspect]
     Active Substance: TERIPARATIDE
     Dosage: 20 UG, UNK
     Dates: start: 20081010, end: 200810

REACTIONS (8)
  - Lip dry [Unknown]
  - Feeling abnormal [Unknown]
  - Palpitations [Unknown]
  - Nausea [Unknown]
  - Back pain [Unknown]
  - Tremor [Unknown]
  - Tongue disorder [Unknown]
  - Tongue blistering [Unknown]

NARRATIVE: CASE EVENT DATE: 20081010
